FAERS Safety Report 8119944-2 (Version None)
Quarter: 2012Q1

REPORT INFORMATION
  Report Type: 
  Country: None (occurrence: None)
  Receive Date: 20120207
  Receipt Date: 20120203
  Transmission Date: 20120608
  Serious: No
  Sender: FDA-Public Use
  Company Number: US-BAYER-2012-009643

PATIENT
  Age: 45 Year
  Weight: 95 kg

DRUGS (5)
  1. OMEPRAZOLE [Concomitant]
  2. AMLODIPINE [Concomitant]
  3. ALEVE (CAPLET) [Suspect]
     Indication: BACK PAIN
     Dosage: 2 TAB THREE TIMES DAILY
     Dates: start: 20120115
  4. TRIAM CO [Concomitant]
  5. ZYRTEC [Concomitant]

REACTIONS (1)
  - NO ADVERSE EVENT [None]
